FAERS Safety Report 19833351 (Version 1)
Quarter: 2021Q3

REPORT INFORMATION
  Report Type: Spontaneous
  Country: US (occurrence: US)
  Receive Date: 20210915
  Receipt Date: 20210915
  Transmission Date: 20211014
  Serious: No
  Sender: FDA-Public Use
  Company Number: US-GILEAD-2021-0548324

PATIENT
  Age: 38 Year
  Sex: Male

DRUGS (2)
  1. INVEGA [Concomitant]
     Active Substance: PALIPERIDONE
  2. SOFOSBUVIR;VELPATASVIR [Suspect]
     Active Substance: SOFOSBUVIR\VELPATASVIR
     Indication: CHRONIC HEPATITIS C
     Dosage: 1 DOSAGE FORM, QD
     Route: 048
     Dates: start: 20210901

REACTIONS (1)
  - Hyperhidrosis [Unknown]
